FAERS Safety Report 5599722-9 (Version None)
Quarter: 2008Q1

REPORT INFORMATION
  Report Type: 
  Country: None (occurrence: None)
  Receive Date: 20080123
  Receipt Date: 20080115
  Transmission Date: 20080703
  Serious: Yes (Hospitalization)
  Sender: FDA-Public Use
  Company Number: GB-BRISTOL-MYERS SQUIBB COMPANY-14040893

PATIENT
  Age: 51 Year
  Sex: Female
  Weight: 94 kg

DRUGS (8)
  1. PACLITAXEL [Suspect]
     Indication: BREAST CANCER
     Dosage: PACLITAXEL THERAPY INITIATED ON 01-NOV-2007
     Route: 042
     Dates: start: 20071214, end: 20071214
  2. CYCLOPHOSPHAMIDE [Suspect]
     Indication: BREAST CANCER
     Dosage: 600MG/M2- Q3 WEEK
     Dates: start: 20071011, end: 20071011
  3. GEMCITABINE [Suspect]
     Indication: BREAST CANCER
     Dosage: THERAPY START DATE: 01-NOV-2007
     Route: 042
     Dates: start: 20071214, end: 20071214
  4. EPIRUBICIN [Suspect]
     Indication: BREAST CANCER
     Dosage: 90MG/M2
     Dates: start: 20071011, end: 20071011
  5. HEPARIN [Concomitant]
     Indication: EMBOLISM
     Route: 042
     Dates: start: 20071228, end: 20080104
  6. ORAMORPH SR [Concomitant]
     Indication: ANALGESIA
     Route: 048
     Dates: start: 20071228
  7. PRAVASTATIN SODIUM [Concomitant]
     Indication: HYPERCHOLESTEROLAEMIA
     Route: 048
  8. CO-TENIDONE [Concomitant]
     Indication: HYPERTENSION
     Dosage: 1 DOSAGE FORM = 50/12.5MG
     Route: 048

REACTIONS (1)
  - PERIPHERAL ISCHAEMIA [None]
